FAERS Safety Report 21018753 (Version 1)
Quarter: 2022Q2

REPORT INFORMATION
  Report Type: Spontaneous
  Country: None (occurrence: US)
  Receive Date: 20220628
  Receipt Date: 20220628
  Transmission Date: 20220721
  Serious: No
  Sender: FDA-Public Use
  Company Number: US-QOL Medical, LLC-2130361

PATIENT
  Age: 73 Year
  Sex: Female
  Weight: 104.55 kg

DRUGS (9)
  1. SUCRAID [Suspect]
     Active Substance: SACROSIDASE
     Indication: Sucrase-isomaltase deficiency
     Route: 048
     Dates: start: 20220309, end: 20220313
  2. CELEBREX [Concomitant]
     Active Substance: CELECOXIB
  3. PREVACID [Concomitant]
     Active Substance: LANSOPRAZOLE
  4. LEXAPRO [Concomitant]
     Active Substance: ESCITALOPRAM OXALATE
  5. REPATHA [Concomitant]
     Active Substance: EVOLOCUMAB
  6. Norvase [Concomitant]
  7. ASPIRIN [Concomitant]
     Active Substance: ASPIRIN
  8. SINGULAIR [Concomitant]
     Active Substance: MONTELUKAST SODIUM
  9. NITROGLYCERIN [Concomitant]
     Active Substance: NITROGLYCERIN

REACTIONS (1)
  - Pruritus [Recovered/Resolved]

NARRATIVE: CASE EVENT DATE: 20220311
